FAERS Safety Report 25581448 (Version 1)
Quarter: 2025Q3

REPORT INFORMATION
  Report Type: Spontaneous
  Country: US (occurrence: US)
  Receive Date: 20250718
  Receipt Date: 20250718
  Transmission Date: 20251021
  Serious: Yes (Other)
  Sender: MERCK SHARP & DOHME LLC
  Company Number: US-009507513-2310126

PATIENT
  Age: 48 Year
  Sex: Male

DRUGS (2)
  1. DAPTOMYCIN [Suspect]
     Active Substance: DAPTOMYCIN
  2. MEROPENEM [Concomitant]
     Active Substance: MEROPENEM

REACTIONS (2)
  - Eosinophilic pneumonia acute [Recovered/Resolved]
  - Product use in unapproved indication [Unknown]
